FAERS Safety Report 24987162 (Version 3)
Quarter: 2025Q1

REPORT INFORMATION
  Report Type: Spontaneous
  Country: US (occurrence: US)
  Receive Date: 20250219
  Receipt Date: 20250313
  Transmission Date: 20250408
  Serious: No
  Sender: ABBVIE
  Company Number: US-ABBVIE-6139094

PATIENT
  Age: 68 Year
  Sex: Female

DRUGS (2)
  1. BOTOX [Suspect]
     Active Substance: ONABOTULINUMTOXINA
     Indication: Ophthalmic migraine
     Route: 050
     Dates: start: 1995, end: 1995
  2. BOTOX [Suspect]
     Active Substance: ONABOTULINUMTOXINA
     Indication: Ophthalmic migraine
     Route: 065
     Dates: start: 20241125, end: 20241125

REACTIONS (8)
  - Depression [Not Recovered/Not Resolved]
  - Migraine [Recovered/Resolved]
  - Unevaluable event [Not Recovered/Not Resolved]
  - COVID-19 [Not Recovered/Not Resolved]
  - Photophobia [Unknown]
  - Confusional state [Unknown]
  - Migraine [Unknown]
  - Drug ineffective [Not Recovered/Not Resolved]

NARRATIVE: CASE EVENT DATE: 20241101
